FAERS Safety Report 14350345 (Version 1)
Quarter: 2018Q1

REPORT INFORMATION
  Report Type: Spontaneous
  Country: DE (occurrence: DE)
  Receive Date: 20180104
  Receipt Date: 20180104
  Transmission Date: 20180509
  Serious: Yes (Hospitalization, Other)
  Sender: FDA-Public Use
  Company Number: DE-WEST-WARD PHARMACEUTICALS CORP.-DE-H14001-17-05303

PATIENT
  Age: 60 Year
  Sex: Male

DRUGS (2)
  1. SPIRONOLACTONE. [Concomitant]
     Active Substance: SPIRONOLACTONE
     Indication: PRODUCT USED FOR UNKNOWN INDICATION
     Route: 065
  2. DOXORUBICIN [Suspect]
     Active Substance: DOXORUBICIN
     Indication: HEPATOCELLULAR CARCINOMA
     Dosage: 75 MG/M2 TARGETED BODY SURFACE AREA
     Route: 065

REACTIONS (1)
  - Hepatic necrosis [Unknown]
